FAERS Safety Report 24556097 (Version 4)
Quarter: 2025Q2

REPORT INFORMATION
  Report Type: Report from Study
  Country: US (occurrence: US)
  Receive Date: 20241028
  Receipt Date: 20250513
  Transmission Date: 20250716
  Serious: No
  Sender: TRAVERE THERAPEUTICS
  Company Number: US-TRAVERE-2024TVT01004

PATIENT
  Age: 37 Year
  Sex: Male

DRUGS (14)
  1. FILSPARI [Suspect]
     Active Substance: SPARSENTAN
     Indication: IgA nephropathy
     Route: 048
     Dates: start: 20240914
  2. FABHALTA [Suspect]
     Active Substance: IPTACOPAN HYDROCHLORIDE
     Indication: IgA nephropathy
     Dates: start: 202502
  3. COVID-19 vaccine [Concomitant]
  4. INFLUENZA VIRUS VACCINE [Concomitant]
     Active Substance: INFLUENZA VIRUS VACCINE
  5. FARXIGA [Concomitant]
     Active Substance: DAPAGLIFLOZIN PROPANEDIOL
  6. ALBUTEROL [Concomitant]
     Active Substance: ALBUTEROL
  7. VITAMIN D2 [Concomitant]
     Active Substance: ERGOCALCIFEROL
  8. OMEGA 3 [Concomitant]
     Active Substance: CAPSAICIN
  9. LISINOPRIL [Concomitant]
     Active Substance: LISINOPRIL
  10. VEETID [Concomitant]
  11. MAGNESIUM [Concomitant]
     Active Substance: MAGNESIUM
  12. BACTRIM [Concomitant]
     Active Substance: SULFAMETHOXAZOLE\TRIMETHOPRIM
  13. PROTONIX [Concomitant]
     Active Substance: PANTOPRAZOLE SODIUM
  14. IPTACOPAN [Concomitant]
     Active Substance: IPTACOPAN

REACTIONS (7)
  - Immunosuppression [Unknown]
  - Pyrexia [Unknown]
  - Dizziness [None]
  - Hypotension [Unknown]
  - Blood test abnormal [Unknown]
  - Urine analysis abnormal [Unknown]
  - Contraindicated product administered [Unknown]

NARRATIVE: CASE EVENT DATE: 20250201
